FAERS Safety Report 15385163 (Version 2)
Quarter: 2018Q4

REPORT INFORMATION
  Report Type: Spontaneous
  Country: JP (occurrence: JP)
  Receive Date: 20180914
  Receipt Date: 20181023
  Transmission Date: 20190204
  Serious: Yes (Hospitalization)
  Sender: FDA-Public Use
  Company Number: PHJP2018JP016126

PATIENT
  Age: 16 Year
  Sex: Female

DRUGS (8)
  1. MODAFINIL. [Suspect]
     Active Substance: MODAFINIL
     Indication: HALLUCINATION, AUDITORY
  2. NICOFEROL [Concomitant]
     Indication: PRODUCT USED FOR UNKNOWN INDICATION
     Dosage: 500 MG, UNK
     Route: 048
  3. EVEROLIMUS. [Concomitant]
     Active Substance: EVEROLIMUS
     Indication: PRODUCT USED FOR UNKNOWN INDICATION
     Dosage: 2 MG, UNK
     Route: 048
  4. RITALIN [Suspect]
     Active Substance: METHYLPHENIDATE HYDROCHLORIDE
     Indication: NARCOLEPSY
     Dosage: 20 MG, UNK
     Route: 048
     Dates: start: 20170206, end: 20170720
  5. MODAFINIL. [Suspect]
     Active Substance: MODAFINIL
     Indication: NARCOLEPSY
     Dosage: 300 MG, UNK
     Route: 048
  6. MODAFINIL. [Suspect]
     Active Substance: MODAFINIL
     Indication: DELUSION
  7. TACROLIMUS MONOHYDRATE [Concomitant]
     Active Substance: TACROLIMUS
     Indication: PRODUCT USED FOR UNKNOWN INDICATION
     Dosage: 3 MG, UNK
     Route: 048
  8. MODAFINIL. [Suspect]
     Active Substance: MODAFINIL
     Indication: HALLUCINATION
     Dosage: UNK
     Route: 065

REACTIONS (3)
  - Hallucination [Recovering/Resolving]
  - Delusion [Recovering/Resolving]
  - Hallucination, auditory [Recovering/Resolving]

NARRATIVE: CASE EVENT DATE: 20170720
